FAERS Safety Report 13523701 (Version 1)
Quarter: 2017Q2

REPORT INFORMATION
  Report Type: Spontaneous
  Country: US (occurrence: US)
  Receive Date: 20170508
  Receipt Date: 20170508
  Transmission Date: 20170830
  Serious: No
  Sender: FDA-Public Use
  Company Number: ALCN2011US001914

PATIENT
  Sex: Female

DRUGS (1)
  1. SYSTANE (HYPROMELLOSE 2910 (4000 MPA.S)) [Suspect]
     Active Substance: HYPROMELLOSE 2910 (4000 MPA.S)
     Route: 047

REACTIONS (5)
  - Mucocutaneous rash [Recovered/Resolved]
  - Dizziness [Recovered/Resolved]
  - Glossitis [Recovered/Resolved]
  - Hypoaesthesia oral [Recovered/Resolved]
  - Neck pain [Recovered/Resolved]
